FAERS Safety Report 12915993 (Version 1)
Quarter: 2016Q4

REPORT INFORMATION
  Report Type: Spontaneous
  Country: US (occurrence: US)
  Receive Date: 20161107
  Receipt Date: 20161107
  Transmission Date: 20170207
  Serious: No
  Sender: FDA-Public Use
  Company Number: US-AUROBINDO-AUR-APL-2015-10199

PATIENT
  Sex: Female
  Weight: 56 kg

DRUGS (1)
  1. METOPROLOL TARTRATE TABLETS USP 25 MG [Suspect]
     Active Substance: METOPROLOL TARTRATE
     Indication: PRODUCT USED FOR UNKNOWN INDICATION
     Dosage: 0.5 DF, DAILY
     Route: 065

REACTIONS (1)
  - Intentional product use issue [Recovering/Resolving]
